FAERS Safety Report 15869759 (Version 3)
Quarter: 2019Q1

REPORT INFORMATION
  Report Type: Report from Study
  Country: US (occurrence: US)
  Receive Date: 20190125
  Receipt Date: 20190328
  Transmission Date: 20190417
  Serious: Yes (Hospitalization, Other)
  Sender: FDA-Public Use
  Company Number: US-GILEAD-2019-0386879

PATIENT
  Age: 87 Year
  Sex: Female

DRUGS (6)
  1. IDELALISIB [Suspect]
     Active Substance: IDELALISIB
     Indication: SKIN CANCER
     Dosage: 100 MG, BID
     Route: 048
     Dates: start: 20150901
  2. NEXIUM [Concomitant]
     Active Substance: ESOMEPRAZOLE MAGNESIUM
  3. RITUXAN [Concomitant]
     Active Substance: RITUXIMAB
     Indication: CHRONIC LYMPHOCYTIC LEUKAEMIA
     Dosage: DOSE NOT PROVIDED, INTRAVENOUS INFUSION EVERY 2 WEEKS.
     Dates: start: 20130626
  4. LEVOTHYROXINE. [Concomitant]
     Active Substance: LEVOTHYROXINE
  5. IDELALISIB [Suspect]
     Active Substance: IDELALISIB
     Indication: CHRONIC LYMPHOCYTIC LEUKAEMIA
     Dosage: 100 MG, QD
     Route: 048
     Dates: start: 20150826
  6. RITUXAN [Concomitant]
     Active Substance: RITUXIMAB
     Indication: SKIN CANCER

REACTIONS (8)
  - Gait disturbance [Recovering/Resolving]
  - Walking aid user [Recovering/Resolving]
  - Rehabilitation therapy [Recovering/Resolving]
  - Hip surgery [Recovering/Resolving]
  - Fall [Recovered/Resolved with Sequelae]
  - Off label use [Recovered/Resolved]
  - Physiotherapy [Recovered/Resolved]
  - Hip fracture [Recovered/Resolved with Sequelae]

NARRATIVE: CASE EVENT DATE: 20150826
